FAERS Safety Report 15265255 (Version 13)
Quarter: 2022Q3

REPORT INFORMATION
  Report Type: Report from Study
  Country: US (occurrence: US)
  Receive Date: 20180810
  Receipt Date: 20220714
  Transmission Date: 20221026
  Serious: Yes (Other)
  Sender: FDA-Public Use
  Company Number: US-SA-2018SA217814

PATIENT
  Age: 65 Year
  Sex: Female

DRUGS (6)
  1. SARILUMAB [Suspect]
     Active Substance: SARILUMAB
     Indication: Rheumatoid arthritis
     Dosage: 200 MG, QOW
     Route: 058
     Dates: start: 201807
  2. SARILUMAB [Suspect]
     Active Substance: SARILUMAB
     Dosage: 200 MG, QOW
     Route: 058
  3. SARILUMAB [Suspect]
     Active Substance: SARILUMAB
     Dosage: 200 MG, QOW
     Route: 058
     Dates: start: 20190101
  4. SARILUMAB [Suspect]
     Active Substance: SARILUMAB
     Indication: Rheumatoid arthritis
     Dosage: 200 MG, QOW
     Route: 058
     Dates: start: 20200807
  5. SARILUMAB [Suspect]
     Active Substance: SARILUMAB
     Dosage: 200 MG, PRN
     Route: 058
  6. METHOTREXATE [Concomitant]
     Active Substance: METHOTREXATE
     Indication: Rheumatoid arthritis
     Dosage: UNK UNK, QD

REACTIONS (25)
  - Pulmonary hypertension [Not Recovered/Not Resolved]
  - Liver disorder [Unknown]
  - Hepatic enzyme increased [Unknown]
  - Injection site dryness [Unknown]
  - Injection site bruising [Unknown]
  - Contusion [Unknown]
  - Fatigue [Unknown]
  - Pain in extremity [Unknown]
  - Headache [Unknown]
  - Oropharyngeal pain [Unknown]
  - Alopecia [Unknown]
  - Illness [Unknown]
  - Malaise [Unknown]
  - Diarrhoea [Unknown]
  - Faeces hard [Unknown]
  - Mucous stools [Unknown]
  - Exposure to SARS-CoV-2 [Unknown]
  - Influenza [Unknown]
  - White blood cell count decreased [Unknown]
  - Liver function test increased [Not Recovered/Not Resolved]
  - Nasopharyngitis [Unknown]
  - Eye operation [Unknown]
  - Unevaluable event [Unknown]
  - Product dose omission issue [Unknown]
  - Product dose omission in error [Unknown]

NARRATIVE: CASE EVENT DATE: 20190101
